FAERS Safety Report 9289845 (Version 1)
Quarter: 2013Q2

REPORT INFORMATION
  Report Type: Spontaneous
  Country: GB (occurrence: GB)
  Receive Date: 20130515
  Receipt Date: 20130515
  Transmission Date: 20140414
  Serious: Yes (Hospitalization)
  Sender: FDA-Public Use
  Company Number: GB-MERCK-1305GBR006635

PATIENT
  Sex: Female

DRUGS (1)
  1. CANCIDAS [Suspect]
     Dosage: 40MG

REACTIONS (2)
  - Adverse event [Unknown]
  - Wrong technique in drug usage process [Unknown]
